FAERS Safety Report 12062537 (Version 1)
Quarter: 2016Q1

REPORT INFORMATION
  Report Type: Spontaneous
  Country: US (occurrence: US)
  Receive Date: 20160210
  Receipt Date: 20160210
  Transmission Date: 20160526
  Serious: No
  Sender: FDA-Public Use
  Company Number: US-ALLERGAN-1504504US

PATIENT
  Age: 63 Year
  Sex: Female

DRUGS (3)
  1. JUVEDERM [Suspect]
     Active Substance: HYALURONIC ACID
     Indication: DERMAL FILLER INJECTION
  2. JUVEDERM [Suspect]
     Active Substance: HYALURONIC ACID
     Indication: DERMAL FILLER INJECTION
     Dosage: UNK UNK, SINGLE
     Route: 030
     Dates: start: 20150209, end: 20150209
  3. BOTOX COSMETIC [Suspect]
     Active Substance: ONABOTULINUMTOXINA
     Indication: SKIN WRINKLING
     Dosage: UNK, SINGLE
     Route: 030
     Dates: start: 20150209, end: 20150209

REACTIONS (2)
  - Erythema [Recovered/Resolved]
  - Injection site bruising [Recovered/Resolved]

NARRATIVE: CASE EVENT DATE: 20150209
